APPROVED DRUG PRODUCT: CLINDAMYCIN PHOSPHATE
Active Ingredient: CLINDAMYCIN PHOSPHATE
Strength: 1%
Dosage Form/Route: AEROSOL, FOAM;TOPICAL
Application: A090785 | Product #001 | TE Code: AT
Applicant: PADAGIS ISRAEL PHARMACEUTICALS LTD
Approved: Mar 31, 2010 | RLD: No | RS: Yes | Type: RX